FAERS Safety Report 9934239 (Version 2)
Quarter: 2014Q1

REPORT INFORMATION
  Report Type: Report from Study
  Country: US (occurrence: US)
  Receive Date: 20140228
  Receipt Date: 20140228
  Transmission Date: 20141002
  Serious: Yes (Other)
  Sender: FDA-Public Use
  Company Number: US-SA-2014SA000539

PATIENT
  Age: 52 Year
  Sex: Female

DRUGS (1)
  1. AUBAGIO [Suspect]
     Indication: MULTIPLE SCLEROSIS
     Route: 065
     Dates: start: 20131114, end: 20131211

REACTIONS (10)
  - Suicidal ideation [Unknown]
  - Onychoclasis [Unknown]
  - Nail discolouration [Unknown]
  - Mass [Unknown]
  - Depression [Unknown]
  - Chromaturia [Unknown]
  - Abdominal pain [Unknown]
  - Decreased appetite [Unknown]
  - Abdominal pain upper [Unknown]
  - Drug dose omission [Unknown]
